FAERS Safety Report 8258704-9 (Version None)
Quarter: 2012Q2

REPORT INFORMATION
  Report Type: 
  Country: None (occurrence: None)
  Receive Date: 20120404
  Receipt Date: 20120329
  Transmission Date: 20120825
  Serious: Yes (Death, Hospitalization, Other)
  Sender: FDA-Public Use
  Company Number: AT-ABBOTT-11P-009-0883661-00

PATIENT
  Sex: Female

DRUGS (6)
  1. AZATHIOPRINE [Suspect]
     Indication: SEPSIS
     Dosage: 50 MG -100 MG DAILY
     Dates: start: 20101001, end: 20101201
  2. PREDNISOLONE [Suspect]
     Indication: SEPSIS
  3. HUMIRA [Suspect]
     Indication: CROHN'S DISEASE
  4. PREDNISOLONE [Suspect]
     Indication: SERRATIA INFECTION
  5. HUMIRA [Suspect]
     Indication: RHEUMATOID ARTHRITIS
     Dates: start: 20091001, end: 20100611
  6. PREDNISOLONE [Suspect]
     Indication: BACTERIAL SEPSIS
     Dosage: DAILY
     Dates: start: 20080501, end: 20101201

REACTIONS (7)
  - BACTERIAL SEPSIS [None]
  - CROHN'S DISEASE [None]
  - SERRATIA INFECTION [None]
  - SEPSIS [None]
  - COLONIC STENOSIS [None]
  - ERYSIPELAS [None]
  - STAPHYLOCOCCAL SEPSIS [None]
